FAERS Safety Report 7473674-9 (Version None)
Quarter: 2011Q2

REPORT INFORMATION
  Report Type: 
  Country: None (occurrence: None)
  Receive Date: 20110511
  Receipt Date: 20110429
  Transmission Date: 20111010
  Serious: Yes (Hospitalization)
  Sender: FDA-Public Use
  Company Number: US-BAYER-2011-015925

PATIENT
  Age: 24 Year
  Sex: Female
  Weight: 77.098 kg

DRUGS (9)
  1. YAZ [Suspect]
     Indication: PRODUCT USED FOR UNKNOWN INDICATION
     Dosage: UNK
     Route: 048
     Dates: start: 20081201, end: 20090201
  2. PRISTIQ [Concomitant]
     Dosage: 50 MG, QD
     Route: 048
  3. KLONOPIN [Concomitant]
     Dosage: 2 MG, TID
     Route: 048
  4. YASMIN [Suspect]
     Indication: PRODUCT USED FOR UNKNOWN INDICATION
     Dosage: UNK
     Route: 048
     Dates: start: 20081201, end: 20090201
  5. IBUPROFEN [Concomitant]
     Dosage: 800 MG, QD
  6. SEROQUEL [Concomitant]
     Dosage: 400 MG, QD
     Route: 048
  7. CHLORZOXAZONE [Concomitant]
     Dosage: 500 MG, Q6WK
     Route: 048
  8. VOLTAREN [Concomitant]
     Dosage: 240 MG, QD
     Route: 048
  9. COUMADIN [Concomitant]
     Indication: PULMONARY EMBOLISM
     Dosage: UNK
     Dates: start: 20090201

REACTIONS (5)
  - ANXIETY [None]
  - PULMONARY EMBOLISM [None]
  - FEAR [None]
  - INJURY [None]
  - PAIN [None]
